FAERS Safety Report 8602368-9 (Version None)
Quarter: 2012Q3

REPORT INFORMATION
  Report Type: 
  Country: None (occurrence: None)
  Receive Date: 20120817
  Receipt Date: 20120808
  Transmission Date: 20120928
  Serious: Yes (Other)
  Sender: FDA-Public Use
  Company Number: CA-ASTRAZENECA-2012SE56658

PATIENT
  Age: 49 Year

DRUGS (1)
  1. ARIMIDEX [Suspect]
     Indication: BREAST CANCER
     Route: 048
     Dates: start: 20080101, end: 20110101

REACTIONS (3)
  - BREAST CANCER METASTATIC [None]
  - METASTASES TO BONE [None]
  - METASTASES TO LIVER [None]
